FAERS Safety Report 16831802 (Version 1)
Quarter: 2019Q3

REPORT INFORMATION
  Report Type: Spontaneous
  Country: GB (occurrence: GB)
  Receive Date: 20190920
  Receipt Date: 20190920
  Transmission Date: 20191005
  Serious: Yes (Other)
  Sender: FDA-Public Use
  Company Number: GB-TEVA-2019-GB-1109716

PATIENT
  Age: 78 Year
  Sex: Female
  Weight: 77 kg

DRUGS (10)
  1. SALBUTAMOL [Concomitant]
     Active Substance: ALBUTEROL
     Route: 055
     Dates: start: 20181004
  2. ALENDRONIC ACID [Concomitant]
     Active Substance: ALENDRONIC ACID
     Dosage: ON THE SAME DAY EACH WEEK.
     Dates: start: 20190424
  3. ANORO ELLIPTA [Concomitant]
     Active Substance: UMECLIDINIUM BROMIDE\VILANTEROL TRIFENATATE
     Dosage: 1 DF
     Route: 055
     Dates: start: 20181004
  4. RANITIDINE. [Concomitant]
     Active Substance: RANITIDINE
     Dosage: NIGHT 1 DOSAGE FORM
     Dates: start: 20190326
  5. INDAPAMIDE. [Concomitant]
     Active Substance: INDAPAMIDE
     Dosage: MORNING 1 DOSAGE FORM
     Dates: start: 20190701
  6. LOSARTAN. [Concomitant]
     Active Substance: LOSARTAN
     Dosage: 1 DF
     Dates: start: 20190715
  7. CALCIUM CARBONATE. [Concomitant]
     Active Substance: CALCIUM CARBONATE
     Dosage: 1 DF
     Dates: start: 20190424
  8. HYDROXOCOBALAMIN [Concomitant]
     Active Substance: HYDROXOCOBALAMIN
     Dates: start: 20181105
  9. AMLODIPINE [Suspect]
     Active Substance: AMLODIPINE BESYLATE
     Dates: start: 20190326, end: 20190701
  10. LANSOPRAZOLE. [Concomitant]
     Active Substance: LANSOPRAZOLE
     Dosage: 1 DF
     Dates: start: 20190326

REACTIONS (2)
  - Peripheral swelling [Unknown]
  - Joint swelling [Recovering/Resolving]
